FAERS Safety Report 15796243 (Version 1)
Quarter: 2019Q1

REPORT INFORMATION
  Report Type: Report from Study
  Country: DE (occurrence: DE)
  Receive Date: 20190108
  Receipt Date: 20190108
  Transmission Date: 20190417
  Serious: Yes (Other)
  Sender: FDA-Public Use
  Company Number: DE-ROCHE-2239999

PATIENT
  Age: 39 Year
  Sex: Female

DRUGS (3)
  1. PREDNISOLUT [Concomitant]
     Active Substance: PREDNISOLONE
     Route: 042
     Dates: start: 20180503
  2. FENISTIL (GERMANY) [Concomitant]
     Active Substance: DIMETHINDENE MALEATE
     Route: 042
     Dates: start: 20180503
  3. OCRELIZUMAB. [Suspect]
     Active Substance: OCRELIZUMAB
     Indication: PRIMARY PROGRESSIVE MULTIPLE SCLEROSIS
     Dosage: MOST RECENT DOSE:23/OCT/2018
     Route: 042
     Dates: start: 20180503

REACTIONS (3)
  - Adrenocortical insufficiency acute [Recovered/Resolved]
  - Hypophysitis [Recovered/Resolved]
  - Hypopituitarism [Recovered/Resolved]

NARRATIVE: CASE EVENT DATE: 20181106
